FAERS Safety Report 9346866 (Version 1)
Quarter: 2013Q2

REPORT INFORMATION
  Report Type: Spontaneous
  Country: MX (occurrence: MX)
  Receive Date: 20130613
  Receipt Date: 20130613
  Transmission Date: 20140414
  Serious: Yes (Other)
  Sender: FDA-Public Use
  Company Number: MX-BRISTOL-MYERS SQUIBB COMPANY-19005826

PATIENT
  Age: 37 Year
  Sex: Female

DRUGS (1)
  1. OHRENCIA [Suspect]
     Indication: RHEUMATOID ARTHRITIS
     Route: 042
     Dates: start: 20120404

REACTIONS (3)
  - Uterine disorder [Unknown]
  - Dizziness [Unknown]
  - Anaemia [Unknown]
